FAERS Safety Report 8535674-7 (Version None)
Quarter: 2012Q3

REPORT INFORMATION
  Report Type: 
  Country: None (occurrence: None)
  Receive Date: 20120725
  Receipt Date: 20120721
  Transmission Date: 20120928
  Serious: No
  Sender: FDA-Public Use
  Company Number: US-PFIZER INC-2012177062

PATIENT
  Sex: Male
  Weight: 93.424 kg

DRUGS (5)
  1. NEXIUM [Concomitant]
     Dosage: UNK
  2. ZYRTEC [Concomitant]
     Dosage: 10 MG, UNK
  3. EFFEXOR [Suspect]
     Dosage: UNK
  4. NASONEX [Concomitant]
     Dosage: UNK
     Route: 045
  5. PRISTIQ [Suspect]
     Indication: DEPRESSION
     Dosage: 50 MG, 1X/DAY
     Route: 048
     Dates: start: 20120106

REACTIONS (5)
  - DYSPNOEA [None]
  - FATIGUE [None]
  - ORAL DISCOMFORT [None]
  - INSOMNIA [None]
  - HYPOPNOEA [None]
